FAERS Safety Report 4633554-0 (Version None)
Quarter: 2005Q2

REPORT INFORMATION
  Report Type: 
  Country: None (occurrence: None)
  Receive Date: 20050331
  Receipt Date: 20041227
  Transmission Date: 20051028
  Serious: Yes (Hospitalization)
  Sender: FDA-Public Use
  Company Number: 200416270BCC

PATIENT
  Age: 50 Year
  Sex: Male
  Weight: 113.3993 kg

DRUGS (5)
  1. ALEVE [Suspect]
     Indication: BACK PAIN
     Dosage: PRN ORAL
     Route: 048
  2. ALEVE [Suspect]
     Indication: HEADACHE
     Dosage: PRN ORAL
     Route: 048
  3. ALEVE [Suspect]
     Indication: MYALGIA
     Dosage: PRN ORAL
     Route: 048
  4. IBUPROFEN [Suspect]
  5. ST JOHN'S WORT [Concomitant]

REACTIONS (2)
  - BLOOD URINE PRESENT [None]
  - HAEMATOCHEZIA [None]
